FAERS Safety Report 10615933 (Version 2)
Quarter: 2014Q4

REPORT INFORMATION
  Report Type: Report from Study
  Country: US (occurrence: US)
  Receive Date: 20141201
  Receipt Date: 20141201
  Transmission Date: 20150529
  Serious: Yes (Other)
  Sender: FDA-Public Use
  Company Number: US-ASTELLAS-2014US015771

PATIENT
  Sex: Male

DRUGS (4)
  1. LEXAPRO                            /01588501/ [Concomitant]
     Indication: ANXIETY
     Route: 048
     Dates: start: 201410
  2. LOVENOX [Concomitant]
     Active Substance: ENOXAPARIN SODIUM
     Indication: THROMBOSIS
     Route: 058
     Dates: start: 201303
  3. ERLOTINIB [Suspect]
     Active Substance: ERLOTINIB
     Indication: LUNG NEOPLASM MALIGNANT
     Route: 048
     Dates: start: 201406
  4. KEPPRA [Concomitant]
     Active Substance: LEVETIRACETAM
     Indication: RADIOTHERAPY TO BRAIN
     Route: 065
     Dates: start: 201404

REACTIONS (6)
  - Oropharyngeal pain [Not Recovered/Not Resolved]
  - Growth of eyelashes [Not Recovered/Not Resolved]
  - Fistula [Unknown]
  - Rash [Recovering/Resolving]
  - Nasopharyngitis [Not Recovered/Not Resolved]
  - Nausea [Recovered/Resolved]
